FAERS Safety Report 24235250 (Version 4)
Quarter: 2024Q3

REPORT INFORMATION
  Report Type: Report from Study
  Country: JP (occurrence: JP)
  Receive Date: 20240821
  Receipt Date: 20240918
  Transmission Date: 20241017
  Serious: No
  Sender: TAKEDA
  Company Number: JP-TAKEDA-2024TJP012085

PATIENT
  Age: 5 Decade
  Sex: Male

DRUGS (3)
  1. ANTIHEMOPHILIC FACTOR, PEGYLATED (MW 20000) HUMAN SEQUENCE RECOMBINANT [Suspect]
     Active Substance: ANTIHEMOPHILIC FACTOR, PEGYLATED (MW 20000) HUMAN SEQUENCE RECOMBINANT
     Indication: Product used for unknown indication
     Dosage: UNK
     Route: 065
  2. ANTIHEMOPHILIC FACTOR, PEGYLATED (MW 20000) HUMAN SEQUENCE RECOMBINANT [Suspect]
     Active Substance: ANTIHEMOPHILIC FACTOR, PEGYLATED (MW 20000) HUMAN SEQUENCE RECOMBINANT
     Indication: Product used for unknown indication
     Dosage: UNK
     Route: 065
  3. ANTIHEMOPHILIC FACTOR, PEGYLATED (MW 20000) HUMAN SEQUENCE RECOMBINANT [Suspect]
     Active Substance: ANTIHEMOPHILIC FACTOR, PEGYLATED (MW 20000) HUMAN SEQUENCE RECOMBINANT
     Indication: Product used for unknown indication
     Dosage: UNK
     Route: 065

REACTIONS (2)
  - Treatment noncompliance [Unknown]
  - No adverse event [Unknown]
